FAERS Safety Report 12602378 (Version 3)
Quarter: 2017Q1

REPORT INFORMATION
  Report Type: Spontaneous
  Country: US (occurrence: US)
  Receive Date: 20160728
  Receipt Date: 20170203
  Transmission Date: 20170428
  Serious: No
  Sender: FDA-Public Use
  Company Number: US-PFIZER INC-2016362793

PATIENT
  Age: 61 Year
  Sex: Female
  Weight: 93 kg

DRUGS (20)
  1. NEURONTIN [Suspect]
     Active Substance: GABAPENTIN
     Indication: TRIGEMINAL NEURALGIA
     Dosage: AT A LOW DOSE
     Route: 048
     Dates: start: 20160621
  2. CARBATROL [Suspect]
     Active Substance: CARBAMAZEPINE
     Indication: TRIGEMINAL NEURALGIA
     Dosage: 300 MG, 2X/DAY
     Dates: start: 201608
  3. CARBATROL [Suspect]
     Active Substance: CARBAMAZEPINE
     Dosage: 300 MG, 2X/DAY
     Dates: start: 20160815
  4. VITAMIN B12 [Concomitant]
     Active Substance: CYANOCOBALAMIN
     Indication: SUPPLEMENTATION THERAPY
     Dosage: 1000 MG, DAILY
     Dates: start: 1998
  5. ASPIRIN. [Concomitant]
     Active Substance: ASPIRIN
     Dosage: UNK
     Dates: start: 2006
  6. INDERAL LA [Concomitant]
     Active Substance: PROPRANOLOL HYDROCHLORIDE
     Indication: MIGRAINE
     Dosage: 160MG CAPSULE, 1 AT BEDTIME
     Dates: start: 1997
  7. NEURONTIN [Suspect]
     Active Substance: GABAPENTIN
     Indication: SEIZURE
     Dosage: 600MG TABLETS, 2 IN THE MORNING, 1 IN THE AFTERNOON, AND 1 AT BEDTIME
     Route: 048
  8. NEURONTIN [Suspect]
     Active Substance: GABAPENTIN
     Dosage: 1200 MG, 2X/DAY (2X AM, ONCE AFTERNOON, ONCE BEDTIME= 2400 MG/DAY)
     Dates: start: 1996
  9. CARBATROL [Suspect]
     Active Substance: CARBAMAZEPINE
     Dosage: 200 MG, 2X/DAY (AM, PM OF BEDTIME)
  10. VITAMIN B12 [Concomitant]
     Active Substance: CYANOCOBALAMIN
     Dosage: UNK
     Dates: start: 2006
  11. HYDROCODONE BITARTRATE AND ACETAMINOPHEN [Concomitant]
     Active Substance: ACETAMINOPHEN\HYDROCODONE BITARTRATE
     Indication: SPINAL PAIN
     Dosage: [HYDROCODONE BITARTRATE 7.5 MG]/[ACETAMINOPHEN 325 MG] ONLY 1 ABOUT TWICE A MONTH
     Route: 048
     Dates: start: 1996
  12. CARBAMAZEPINE. [Concomitant]
     Active Substance: CARBAMAZEPINE
     Indication: TRIGEMINAL NEURALGIA
     Dosage: 2 DF, 3X/DAY
  13. CARBAMAZEPINE. [Concomitant]
     Active Substance: CARBAMAZEPINE
     Dosage: UNK
     Dates: start: 2014
  14. HYDROCODONE BITARTRATE AND ACETAMINOPHEN [Concomitant]
     Active Substance: ACETAMINOPHEN\HYDROCODONE BITARTRATE
     Dosage: UNK
     Dates: start: 2015
  15. ASPIRIN. [Concomitant]
     Active Substance: ASPIRIN
     Indication: BLOOD DISORDER
     Dosage: 81 MG, DAILY
     Dates: start: 2006
  16. DOCUSATE [Concomitant]
     Active Substance: DOCUSATE
     Indication: CONSTIPATION
     Dosage: 100MG, 1 CAPSULE BY MOUTH TWICE PER DAY
     Route: 048
     Dates: start: 2014
  17. CARBAMAZEPINE. [Concomitant]
     Active Substance: CARBAMAZEPINE
     Indication: SEIZURE
     Dosage: 200MG, TAKES 2 TABS IN THE MORNING, 1.5 IN THE AFTERNOON, AND 2 AT BEDTIME
  18. FOLIC ACID. [Concomitant]
     Active Substance: FOLIC ACID
     Dosage: UNK
     Dates: start: 2006
  19. FOLIC ACID. [Concomitant]
     Active Substance: FOLIC ACID
     Indication: SUPPLEMENTATION THERAPY
     Dosage: 800 MG, DAILY
     Dates: start: 1998
  20. DOCUSATE [Concomitant]
     Active Substance: DOCUSATE
     Dosage: UNK
     Dates: start: 2006

REACTIONS (8)
  - Dyskinesia [Recovered/Resolved]
  - Tremor [Recovered/Resolved]
  - Muscle spasms [Recovered/Resolved]
  - Abdominal pain upper [Recovered/Resolved]
  - Muscle disorder [Recovered/Resolved]
  - Drug ineffective for unapproved indication [Recovered/Resolved]
  - Fatigue [Recovered/Resolved]
  - Accident [Recovered/Resolved]

NARRATIVE: CASE EVENT DATE: 2004
